FAERS Safety Report 5370048-1 (Version None)
Quarter: 2007Q2

REPORT INFORMATION
  Report Type: 
  Country: None (occurrence: None)
  Receive Date: 20070626
  Receipt Date: 20070614
  Transmission Date: 20071010
  Serious: Yes (Hospitalization)
  Sender: FDA-Public Use
  Company Number: JP-JNJFOC-20070604273

PATIENT
  Sex: Female
  Weight: 64 kg

DRUGS (11)
  1. REMICADE [Suspect]
     Route: 042
  2. REMICADE [Suspect]
     Route: 042
  3. REMICADE [Suspect]
     Route: 042
  4. REMICADE [Suspect]
     Route: 042
  5. REMICADE [Suspect]
     Route: 042
  6. REMICADE [Suspect]
     Indication: RHEUMATOID ARTHRITIS
     Route: 042
  7. NU-LOTAN [Concomitant]
     Indication: CARDIAC FAILURE CHRONIC
     Route: 048
  8. DILTIAZEM HCL [Concomitant]
     Indication: CARDIAC FAILURE CHRONIC
     Route: 048
  9. PREDONINE [Concomitant]
     Route: 048
  10. METHOTREXATE [Concomitant]
     Indication: RHEUMATOID ARTHRITIS
  11. ADRENAL HORMONE PREPARATION [Concomitant]
     Indication: RHEUMATOID ARTHRITIS

REACTIONS (1)
  - PNEUMOCYSTIS JIROVECI PNEUMONIA [None]
